FAERS Safety Report 20205880 (Version 1)
Quarter: 2021Q4

REPORT INFORMATION
  Report Type: Spontaneous
  Country: US (occurrence: US)
  Receive Date: 20211220
  Receipt Date: 20211220
  Transmission Date: 20220304
  Serious: No
  Sender: FDA-Public Use
  Company Number: US-GW PHARMA-202112USGW06189

PATIENT

DRUGS (6)
  1. EPIDIOLEX [Suspect]
     Active Substance: CANNABIDIOL
     Indication: Tuberous sclerosis complex
     Dosage: 50 MILLIGRAM, BID (DOSE INCREASED) (FIRST SHIPMENT ON 21 FEB 2019)
     Route: 048
     Dates: start: 201902
  2. CHOLECALCIFEROL [Concomitant]
     Active Substance: CHOLECALCIFEROL
     Indication: Product used for unknown indication
     Dosage: FORMULATION-400 (UNSPECIFIED)
     Route: 065
  3. LYSINE [Concomitant]
     Active Substance: LYSINE
     Indication: Product used for unknown indication
     Dosage: UNK
     Route: 065
  4. CETIRIZINE HCL [Concomitant]
     Active Substance: CETIRIZINE HYDROCHLORIDE
     Indication: Product used for unknown indication
     Dosage: UNK
     Route: 065
  5. MELATONIN [Concomitant]
     Active Substance: MELATONIN
     Indication: Product used for unknown indication
     Dosage: UNK
     Route: 065
  6. GANAXOLONE [Concomitant]
     Active Substance: GANAXOLONE
     Indication: Product used for unknown indication
     Dosage: UNK
     Route: 065

REACTIONS (1)
  - Seizure [Not Recovered/Not Resolved]
